FAERS Safety Report 6369881-9 (Version None)
Quarter: 2009Q3

REPORT INFORMATION
  Report Type: 
  Country: None (occurrence: None)
  Receive Date: 20090923
  Receipt Date: 20070515
  Transmission Date: 20100115
  Serious: Yes (Other)
  Sender: FDA-Public Use
  Company Number: US-ASTRAZENECA-2006UW11630

PATIENT
  Age: 43 Year
  Sex: Female
  Weight: 74.4 kg

DRUGS (11)
  1. SEROQUEL [Suspect]
     Indication: MENTAL DISORDER
     Route: 048
     Dates: end: 20060101
  2. SEROQUEL [Suspect]
     Indication: DEPRESSION
     Route: 048
     Dates: end: 20060101
  3. SEROQUEL [Suspect]
     Indication: INSOMNIA
     Route: 048
     Dates: end: 20060101
  4. SEROQUEL [Suspect]
     Indication: PANIC ATTACK
     Route: 048
     Dates: end: 20060101
  5. SEROQUEL [Suspect]
     Dosage: DOSE FLUCTUATED FROM 50MG TO 200MG PER DAY
     Route: 048
     Dates: start: 20021231, end: 20060419
  6. SEROQUEL [Suspect]
     Dosage: DOSE FLUCTUATED FROM 50MG TO 200MG PER DAY
     Route: 048
     Dates: start: 20021231, end: 20060419
  7. SEROQUEL [Suspect]
     Dosage: DOSE FLUCTUATED FROM 50MG TO 200MG PER DAY
     Route: 048
     Dates: start: 20021231, end: 20060419
  8. SEROQUEL [Suspect]
     Dosage: DOSE FLUCTUATED FROM 50MG TO 200MG PER DAY
     Route: 048
     Dates: start: 20021231, end: 20060419
  9. ZYPREXA [Concomitant]
     Dates: start: 20060419
  10. ZYPREXA [Concomitant]
     Dates: start: 20060504
  11. RISPERDAL [Concomitant]
     Dates: start: 20020531

REACTIONS (2)
  - DIABETES MELLITUS [None]
  - PANCREATITIS [None]
